FAERS Safety Report 20660771 (Version 6)
Quarter: 2024Q4

REPORT INFORMATION
  Report Type: Spontaneous
  Country: US (occurrence: US)
  Receive Date: 20220331
  Receipt Date: 20241230
  Transmission Date: 20250115
  Serious: Yes (Other)
  Sender: PFIZER
  Company Number: US-PFIZER INC-202101218762

PATIENT
  Age: 47 Year
  Sex: Female

DRUGS (6)
  1. IBRANCE [Suspect]
     Active Substance: PALBOCICLIB
     Indication: Breast cancer metastatic
     Dosage: 125 MG, CYCLIC (FOR 21 DAYS ON THEN 7 DAYS OFF)
     Dates: start: 20170414
  2. IBRANCE [Suspect]
     Active Substance: PALBOCICLIB
     Dosage: 125 MG, CYCLIC (ONCE DAILY FOR 21 DAYS ON THEN 7 DAYS OFF)
  3. IBRANCE [Suspect]
     Active Substance: PALBOCICLIB
     Dosage: TAKE 1 TABLET BY MOUTH DAILY TAKE ON DAYS 1 - 21 FOLLOWED BY 7 DAYS OFF/TAKE 1 TABLET (100 MG TOTAL)
     Route: 048
     Dates: start: 20181026
  4. LUPRON DEPOT [Suspect]
     Active Substance: LEUPROLIDE ACETATE
     Indication: Menopause
     Dosage: 3.7 MG, CYCLIC (21 DAYS ON THEN 7 DAYS OFF)
     Dates: start: 20170407, end: 202010
  5. XGEVA [Concomitant]
     Active Substance: DENOSUMAB
     Dosage: UNKNOWN DOSE VIA INJECTION
     Dates: start: 20170414
  6. LETROZOLE [Concomitant]
     Active Substance: LETROZOLE
     Indication: Neoplasm malignant
     Dosage: 2.5 MG, DAILY (WITH NO INTERRUPTION)
     Route: 048
     Dates: start: 2017

REACTIONS (20)
  - Diabetes mellitus [Unknown]
  - Neoplasm progression [Unknown]
  - Skin abrasion [Recovering/Resolving]
  - Sensitive skin [Recovering/Resolving]
  - Toothache [Recovering/Resolving]
  - Mastication disorder [Recovering/Resolving]
  - Amenorrhoea [Unknown]
  - Arthralgia [Recovering/Resolving]
  - Malaise [Recovering/Resolving]
  - Fatigue [Recovered/Resolved]
  - Headache [Unknown]
  - Hot flush [Unknown]
  - Weight increased [Unknown]
  - Palpitations [Unknown]
  - Oestradiol decreased [Unknown]
  - Nausea [Unknown]
  - Musculoskeletal stiffness [Recovered/Resolved]
  - Gastrointestinal disorder [Unknown]
  - Cough [Unknown]
  - Nasal congestion [Unknown]

NARRATIVE: CASE EVENT DATE: 20170101
